FAERS Safety Report 8144907-0 (Version None)
Quarter: 2012Q1

REPORT INFORMATION
  Report Type: 
  Country: None (occurrence: None)
  Receive Date: 20120217
  Receipt Date: 20120216
  Transmission Date: 20120608
  Serious: Yes (Other)
  Sender: FDA-Public Use
  Company Number: US-MERCK-1202USA01213

PATIENT
  Age: 71 Year
  Sex: Female

DRUGS (4)
  1. TAXOL [Concomitant]
     Route: 065
  2. CARBOPLATIN [Concomitant]
     Route: 065
  3. FOSAPREPITANT DIMEGLUMINE [Suspect]
     Route: 041
     Dates: start: 20120111
  4. FOSAPREPITANT DIMEGLUMINE [Suspect]
     Route: 041
     Dates: start: 20120201

REACTIONS (4)
  - URTICARIA [None]
  - TYPE I HYPERSENSITIVITY [None]
  - OEDEMA PERIPHERAL [None]
  - RASH [None]
